FAERS Safety Report 23411169 (Version 2)
Quarter: 2024Q1

REPORT INFORMATION
  Report Type: Spontaneous
  Country: US (occurrence: US)
  Receive Date: 20240117
  Receipt Date: 20240124
  Transmission Date: 20240410
  Serious: Yes (Hospitalization, Other)
  Sender: FDA-Public Use
  Company Number: US-GUERBET / LLC-US-20240005

PATIENT
  Age: 76 Year
  Sex: Female
  Weight: 80.9 kg

DRUGS (1)
  1. OPTIRAY 320 [Suspect]
     Active Substance: IOVERSOL
     Indication: Computerised tomogram
     Dosage: UNIT DOSE= 120 ML.
     Route: 042
     Dates: start: 20231219, end: 20231219

REACTIONS (2)
  - Pruritus [Recovered/Resolved]
  - Swelling face [Recovered/Resolved]

NARRATIVE: CASE EVENT DATE: 20231219
